FAERS Safety Report 6884605-4 (Version None)
Quarter: 2010Q3

REPORT INFORMATION
  Report Type: 
  Country: None (occurrence: None)
  Receive Date: 20100729
  Receipt Date: 20070727
  Transmission Date: 20110219
  Serious: No
  Sender: FDA-Public Use
  Company Number: US-PFIZER INC-2007063014

PATIENT
  Sex: Female

DRUGS (10)
  1. CELEBREX [Suspect]
     Indication: CHEST PAIN
     Dates: start: 20070701
  2. SYNTHROID [Concomitant]
  3. CALCITRIOL [Concomitant]
  4. LIPITOR [Concomitant]
  5. ZETIA [Concomitant]
  6. TOPROL-XL [Concomitant]
  7. CYMBALTA [Concomitant]
  8. SEROQUEL [Concomitant]
  9. AMBIEN [Concomitant]
  10. PROTONIX [Concomitant]

REACTIONS (3)
  - MEDICATION ERROR [None]
  - RASH [None]
  - URTICARIA [None]
